FAERS Safety Report 5734862-2 (Version None)
Quarter: 2008Q2

REPORT INFORMATION
  Report Type: 
  Country: None (occurrence: None)
  Receive Date: 20080512
  Receipt Date: 20080509
  Transmission Date: 20081010
  Serious: Yes (Life-Threatening, Hospitalization, Other)
  Sender: FDA-Public Use
  Company Number: A0723208A

PATIENT
  Age: 84 Year
  Sex: Female
  Weight: 67.3 kg

DRUGS (5)
  1. VALTREX [Suspect]
     Dosage: 1G THREE TIMES PER DAY
     Route: 048
     Dates: start: 20080406, end: 20080411
  2. NEXIUM [Concomitant]
     Dosage: 40MG PER DAY
     Route: 048
  3. ATACAND [Concomitant]
     Dosage: 32MG PER DAY
     Route: 048
  4. BROMOCRIPTINE MESYLATE [Concomitant]
     Dosage: 2.5MG PER DAY
     Route: 048
  5. ZOLOFT [Concomitant]
     Dosage: 25MG PER DAY
     Route: 048

REACTIONS (5)
  - BLOOD CREATININE INCREASED [None]
  - BLOOD POTASSIUM INCREASED [None]
  - BLOOD PRESSURE INCREASED [None]
  - BLOOD UREA INCREASED [None]
  - DIZZINESS [None]
